FAERS Safety Report 20135976 (Version 1)
Quarter: 2021Q4

REPORT INFORMATION
  Report Type: Spontaneous
  Country: US (occurrence: None)
  Receive Date: 20211130
  Receipt Date: 20211130
  Transmission Date: 20220303
  Serious: No
  Sender: FDA-Public Use
  Company Number: None

PATIENT

DRUGS (2)
  1. TIMOLOL [Suspect]
     Active Substance: TIMOLOL
     Route: 047
  2. GENTAMICIN SULFATE [Suspect]
     Active Substance: GENTAMICIN SULFATE
     Route: 047

REACTIONS (4)
  - Product packaging confusion [None]
  - Product label confusion [None]
  - Product packaging confusion [None]
  - Intercepted product dispensing error [None]
